FAERS Safety Report 24328071 (Version 1)
Quarter: 2024Q3

REPORT INFORMATION
  Report Type: Spontaneous
  Country: US (occurrence: None)
  Receive Date: 20240916
  Receipt Date: 20240916
  Transmission Date: 20241016
  Serious: Yes (Life-Threatening, Disabling, Other)
  Sender: Public
  Company Number: None

PATIENT
  Age: 68 Year
  Sex: Female
  Weight: 49.95 kg

DRUGS (2)
  1. LEVAQUIN [Suspect]
     Active Substance: LEVOFLOXACIN
     Indication: Viral infection
     Dosage: ?84 TABLETS TWICE A DAY ORAL
     Route: 048
  2. ELIQUIS [Suspect]
     Active Substance: APIXABAN
     Indication: Viral infection
     Dosage: OTHER QUANTITY : 84 TABLET(S);?FREQUENCY : TWICE A DAY;?
     Route: 048

REACTIONS (5)
  - Haematemesis [None]
  - Gait disturbance [None]
  - Abdominal pain upper [None]
  - Muscle spasms [None]
  - Headache [None]

NARRATIVE: CASE EVENT DATE: 20211021
